FAERS Safety Report 8799816 (Version 1)
Quarter: 2012Q4

REPORT INFORMATION
  Report Type: Spontaneous
  Country: US (occurrence: None)
  Receive Date: 20120917
  Receipt Date: 20120917
  Transmission Date: 20130627
  Serious: Yes (Other)
  Sender: FDA-Public Use
  Company Number: ADE12-087

PATIENT
  Age: 21 Year
  Sex: Female
  Weight: 49.9 kg

DRUGS (5)
  1. ROCURONIUM BROMIDE [Suspect]
     Indication: APPENDICITIS
     Route: 042
     Dates: start: 20120904, end: 20120904
  2. PROPOFOL [Concomitant]
  3. SEVOFLURANE [Concomitant]
  4. SUCCINYLCHOLINE 20 MG [Concomitant]
  5. ONDANSETRON 4 MG [Concomitant]

REACTIONS (1)
  - Drug effect prolonged [None]
